FAERS Safety Report 10463777 (Version 1)
Quarter: 2014Q3

REPORT INFORMATION
  Report Type: Spontaneous
  Country: US (occurrence: None)
  Receive Date: 20140918
  Receipt Date: 20140918
  Transmission Date: 20150326
  Serious: Yes (Life-Threatening, Hospitalization, Disabling)
  Sender: FDA-Public Use
  Company Number: None

PATIENT
  Age: 85 Year
  Sex: Male
  Weight: 63.5 kg

DRUGS (1)
  1. PRADAXA [Suspect]
     Active Substance: DABIGATRAN ETEXILATE MESYLATE
     Indication: ATRIAL FIBRILLATION
     Dosage: 1 CAPSULE
     Route: 048
     Dates: start: 20110908, end: 20140908

REACTIONS (3)
  - Contusion [None]
  - Weight decreased [None]
  - Rectal haemorrhage [None]

NARRATIVE: CASE EVENT DATE: 20140909
